FAERS Safety Report 9271997 (Version 1)
Quarter: 2013Q2

REPORT INFORMATION
  Report Type: Spontaneous
  Country: DE (occurrence: GB)
  Receive Date: 20130506
  Receipt Date: 20130506
  Transmission Date: 20140414
  Serious: Yes (Disabling)
  Sender: FDA-Public Use
  Company Number: GB-FRI-1000044928

PATIENT
  Age: 72 Year
  Sex: Male

DRUGS (9)
  1. MEMANTINE [Suspect]
     Indication: DEMENTIA
     Dosage: 20 MG
     Route: 048
     Dates: start: 201207, end: 201301
  2. MEMANTINE [Suspect]
     Dosage: 15 MG
     Route: 048
     Dates: start: 201301, end: 2013
  3. MEMANTINE [Suspect]
     Dosage: 10 MG
     Route: 048
  4. BENDROFLUMETHIAZIDE [Concomitant]
     Indication: HYPERTENSION
     Dosage: 2.5 MG
     Route: 048
  5. LISINOPRIL [Concomitant]
     Indication: HYPERTENSION
     Dosage: 20 MG
     Route: 048
  6. SIMVASTATIN [Concomitant]
     Indication: HYPERCHOLESTEROLAEMIA
     Dosage: 20 MG
     Route: 048
  7. TILDIEM [Concomitant]
     Indication: ATRIAL FIBRILLATION
     Dosage: 200 MG
     Route: 048
  8. TILDIEM [Concomitant]
     Indication: HYPERTENSION
  9. WARFARIN [Concomitant]
     Indication: ATRIAL FIBRILLATION
     Route: 048

REACTIONS (3)
  - Gait disturbance [Recovering/Resolving]
  - Dystonia [Recovering/Resolving]
  - Mobility decreased [Recovering/Resolving]
